FAERS Safety Report 12619725 (Version 2)
Quarter: 2016Q3

REPORT INFORMATION
  Report Type: Report from Study
  Country: US (occurrence: US)
  Receive Date: 20160803
  Receipt Date: 20160818
  Transmission Date: 20161109
  Serious: Yes (Hospitalization, Other)
  Sender: FDA-Public Use
  Company Number: US-INDIVIOR LIMITED-INDV-092615-2016

PATIENT
  Age: 57 Year
  Sex: Female

DRUGS (4)
  1. CRACK COCAINE [Suspect]
     Active Substance: COCAINE
     Indication: PRODUCT USED FOR UNKNOWN INDICATION
     Dosage: UNK
     Route: 065
     Dates: start: 2016, end: 2016
  2. SUBOXONE [Suspect]
     Active Substance: BUPRENORPHINE HYDROCHLORIDE\NALOXONE HYDROCHLORIDE
     Indication: DRUG DEPENDENCE
     Dosage: 8 MG, TID
     Route: 060
     Dates: start: 201512, end: 201607
  3. BUPRENORPHINE/NALOXONE GENERIC [Suspect]
     Active Substance: BUPRENORPHINE\NALOXONE
     Indication: DRUG DEPENDENCE
     Dosage: UNK
     Route: 060
     Dates: start: 201607
  4. SUBOXONE [Suspect]
     Active Substance: BUPRENORPHINE HYDROCHLORIDE\NALOXONE HYDROCHLORIDE
     Indication: PAIN
     Dosage: 8MG,  VARIOUS DOSES
     Route: 060
     Dates: start: 201607, end: 201607

REACTIONS (13)
  - Hallucination [Recovered/Resolved]
  - Psychomotor hyperactivity [Recovering/Resolving]
  - Disturbance in attention [Recovering/Resolving]
  - Dysarthria [Recovered/Resolved]
  - Restlessness [Recovering/Resolving]
  - Drug withdrawal syndrome [Recovering/Resolving]
  - Product use issue [Recovered/Resolved]
  - Hyperhidrosis [Recovering/Resolving]
  - Drug abuse [Recovered/Resolved]
  - Yawning [Recovering/Resolving]
  - Drug detoxification [Unknown]
  - Tremor [Recovering/Resolving]
  - Feeling jittery [Recovering/Resolving]

NARRATIVE: CASE EVENT DATE: 201512
